FAERS Safety Report 24061716 (Version 1)
Quarter: 2024Q3

REPORT INFORMATION
  Report Type: Report from Study
  Country: CO (occurrence: CO)
  Receive Date: 20240708
  Receipt Date: 20240708
  Transmission Date: 20241017
  Serious: Yes (Hospitalization)
  Sender: PFIZER
  Company Number: CO-TAKEDA-2018MPI003611

PATIENT
  Age: 28 Year
  Sex: Male
  Weight: 43 kg

DRUGS (4)
  1. ADCETRIS [Suspect]
     Active Substance: BRENTUXIMAB VEDOTIN
     Indication: Hodgkin^s disease
     Dosage: 90 MILLIGRAM, Q3WEEKS
     Route: 042
     Dates: start: 20170710
  2. ADCETRIS [Suspect]
     Active Substance: BRENTUXIMAB VEDOTIN
     Dosage: 75 MG, EVERY 3 WEEKS
     Route: 042
  3. ADCETRIS [Suspect]
     Active Substance: BRENTUXIMAB VEDOTIN
     Dosage: 93 MG, EVERY 3 WEEKS
     Route: 042
     Dates: start: 20230906
  4. ADCETRIS [Suspect]
     Active Substance: BRENTUXIMAB VEDOTIN
     Dosage: 90 MILLIGRAM, Q3WEEKS
     Route: 042
     Dates: start: 20240411

REACTIONS (25)
  - Positron emission tomogram abnormal [Unknown]
  - Infection [Recovering/Resolving]
  - Productive cough [Recovering/Resolving]
  - COVID-19 [Recovering/Resolving]
  - Pyrexia [Recovering/Resolving]
  - Weight decreased [Recovering/Resolving]
  - Hypophagia [Unknown]
  - Decreased appetite [Recovering/Resolving]
  - Asthenia [Unknown]
  - Fatigue [Unknown]
  - Body height decreased [Unknown]
  - Body height increased [Unknown]
  - Pain [Unknown]
  - Weight increased [Unknown]
  - Underweight [Unknown]
  - Discouragement [Unknown]
  - Treatment noncompliance [Unknown]
  - Influenza [Not Recovered/Not Resolved]
  - Pain in extremity [Unknown]
  - Pallor [Not Recovered/Not Resolved]
  - Lymphadenopathy [Not Recovered/Not Resolved]
  - Blood bilirubin increased [Unknown]
  - Abdominal pain [Not Recovered/Not Resolved]
  - Product dose omission issue [Unknown]
  - Product prescribing error [Unknown]

NARRATIVE: CASE EVENT DATE: 20180401
